FAERS Safety Report 13075883 (Version 2)
Quarter: 2017Q1

REPORT INFORMATION
  Report Type: Spontaneous
  Country: US (occurrence: US)
  Receive Date: 20161230
  Receipt Date: 20170314
  Transmission Date: 20170428
  Serious: No
  Sender: FDA-Public Use
  Company Number: US-BAYER-2016-242775

PATIENT
  Age: 85 Year
  Sex: Female
  Weight: 46 kg

DRUGS (1)
  1. MIRALAX [Suspect]
     Active Substance: POLYETHYLENE GLYCOL 3350
     Indication: GASTROINTESTINAL DISORDER
     Dosage: 2 DOSE
     Route: 048

REACTIONS (2)
  - Abdominal discomfort [Unknown]
  - Product use issue [Unknown]
